FAERS Safety Report 23195883 (Version 4)
Quarter: 2025Q4

REPORT INFORMATION
  Report Type: Spontaneous
  Country: GB (occurrence: GB)
  Receive Date: 20231117
  Receipt Date: 20251121
  Transmission Date: 20260118
  Serious: Yes (Hospitalization, Disabling)
  Sender: NOVARTIS
  Company Number: GB-002147023-NVSC2023GB244756

PATIENT
  Age: 74 Year
  Sex: Male

DRUGS (2)
  1. LUTATHERA [Suspect]
     Active Substance: LUTETIUM OXODOTREOTIDE LU-177
     Indication: Neuroendocrine tumour
     Dosage: 7677 MBQ (4TH DOSE)
     Route: 042
     Dates: start: 20231011
  2. DEXAMETHASONE [Concomitant]
     Active Substance: DEXAMETHASONE
     Indication: Product used for unknown indication
     Route: 048

REACTIONS (2)
  - Small intestinal obstruction [Recovered/Resolved with Sequelae]
  - Abdominal pain [Unknown]

NARRATIVE: CASE EVENT DATE: 20231031
